FAERS Safety Report 18733033 (Version 1)
Quarter: 2021Q1

REPORT INFORMATION
  Report Type: Spontaneous
  Country: US (occurrence: US)
  Receive Date: 20210112
  Receipt Date: 20210112
  Transmission Date: 20210419
  Serious: Yes (Other)
  Sender: FDA-Public Use
  Company Number: US-BEH-2021127139

PATIENT
  Age: 17 Year
  Sex: Female

DRUGS (1)
  1. HIZENTRA [Suspect]
     Active Substance: HUMAN IMMUNOGLOBULIN G
     Indication: HYPOGAMMAGLOBULINAEMIA
     Dosage: 5 GRAM, QW
     Route: 058
     Dates: start: 20180606

REACTIONS (1)
  - Pneumothorax [Unknown]

NARRATIVE: CASE EVENT DATE: 20201226
